FAERS Safety Report 11064689 (Version 2)
Quarter: 2015Q2

REPORT INFORMATION
  Report Type: Spontaneous
  Country: US (occurrence: US)
  Receive Date: 20150424
  Receipt Date: 20150504
  Transmission Date: 20150821
  Serious: Yes (Congenital Anomaly)
  Sender: FDA-Public Use
  Company Number: US-ALLERGAN-1506945US

PATIENT

DRUGS (4)
  1. PATADAY [Concomitant]
     Active Substance: OLOPATADINE HYDROCHLORIDE
     Route: 064
  2. ERYTHROMYCIN. [Concomitant]
     Active Substance: ERYTHROMYCIN
     Dosage: 1/4 TO 1/2 INCH RIBBON INTO LOWER AFFECTED EYELID AT BEDTIME
     Route: 064
  3. LUMIGAN [Suspect]
     Active Substance: BIMATOPROST
     Dosage: 1 GTT, QHS
     Route: 064
     Dates: start: 20140207, end: 20140717
  4. BETOPTIC [Concomitant]
     Active Substance: BETAXOLOL HYDROCHLORIDE
     Dosage: 2 GTT, QHS
     Route: 064

REACTIONS (3)
  - Trisomy 21 [Not Recovered/Not Resolved]
  - Exposure during pregnancy [Unknown]
  - Maternal drugs affecting foetus [None]
